FAERS Safety Report 12923370 (Version 2)
Quarter: 2016Q4

REPORT INFORMATION
  Report Type: Report from Study
  Country: CN (occurrence: CN)
  Receive Date: 20161109
  Receipt Date: 20161115
  Transmission Date: 20170207
  Serious: Yes (Life-Threatening, Hospitalization)
  Sender: FDA-Public Use
  Company Number: CN-AMGEN-CHNCT2016156397

PATIENT
  Age: 68 Year
  Sex: Male
  Weight: 64.5 kg

DRUGS (34)
  1. GLIMEPIRIDE. [Concomitant]
     Active Substance: GLIMEPIRIDE
     Indication: DIABETES MELLITUS
  2. METFORMIN HYDROCHLORIDE. [Concomitant]
     Active Substance: METFORMIN HYDROCHLORIDE
     Indication: DIABETES MELLITUS
     Dosage: 1 UNK, UNK
     Dates: start: 2001
  3. CANDESARTAN CILEXETIL. [Concomitant]
     Active Substance: CANDESARTAN CILEXETIL
     Indication: HYPERTENSION
     Dosage: 0.5 UNK, UNK
     Dates: start: 2008, end: 20160906
  4. CALCIUM GLUCONATE. [Concomitant]
     Active Substance: CALCIUM GLUCONATE
     Indication: MINERAL SUPPLEMENTATION
     Dosage: 10 ML, UNK
     Dates: start: 20161017, end: 20161017
  5. ASPIRIN. [Concomitant]
     Active Substance: ASPIRIN
     Indication: CORONARY ARTERY STENOSIS
     Dosage: 1 UNK, UNK
     Dates: start: 2013, end: 20160906
  6. GLIMEPIRIDE. [Concomitant]
     Active Substance: GLIMEPIRIDE
     Indication: DIABETES MELLITUS
     Dosage: 1 UNK,
     Dates: start: 2001
  7. MIGLITOL. [Concomitant]
     Active Substance: MIGLITOL
     Indication: DIABETES MELLITUS
     Dosage: 0.5 TO 1 UNK, UNK
     Route: 048
     Dates: start: 2001, end: 20161101
  8. APREPITANT. [Concomitant]
     Active Substance: APREPITANT
     Indication: VOMITING
     Dosage: 80 TO 125 MG, UNK
     Dates: start: 20160927, end: 20160928
  9. TERBUTALINE SULFATE. [Concomitant]
     Active Substance: TERBUTALINE SULFATE
     Dosage: 5 MG, UNK
     Dates: start: 20161012, end: 20161018
  10. CEFOPERAZONE SODIUM AND SULBACTAM SODIUM [Concomitant]
     Active Substance: CEFOPERAZONE SODIUM\SULBACTAM SODIUM
     Dosage: 3 G, UNK
     Dates: start: 20161012, end: 20161020
  11. SUCRALFATE. [Concomitant]
     Active Substance: SUCRALFATE
     Dosage: 10 ML, UNK
     Dates: start: 20160830, end: 20160928
  12. DOXOFYLLINE [Concomitant]
     Active Substance: DOXOFYLLINE
     Indication: BRONCHOSPASM
     Dosage: 300 MG, UNK
     Dates: start: 20161012, end: 20161020
  13. MEDICINAL CHARCOAL [Concomitant]
     Dosage: 900 TO1200 MG, UNK
     Dates: start: 20161013, end: 20161023
  14. CARBOPLATIN. [Concomitant]
     Active Substance: CARBOPLATIN
     Dosage: 400 MG, UNK
     Dates: start: 20160803, end: 20160831
  15. TROPISETRON [Concomitant]
     Active Substance: TROPISETRON
     Indication: NAUSEA
     Dosage: 5 MG, UNK
     Dates: start: 20160831, end: 20160929
  16. VITAMIN B6 [Concomitant]
     Active Substance: PYRIDOXINE HYDROCHLORIDE
     Indication: INFUSION
     Dosage: 200 MG, UNK
     Dates: start: 20160831, end: 20160929
  17. METHYLPREDNISOLONE SODIUM SUCCINATE. [Concomitant]
     Active Substance: METHYLPREDNISOLONE SODIUM SUCCINATE
     Indication: INFECTION PROPHYLAXIS
     Dosage: 40 MG, UNK
     Dates: start: 20161017, end: 20161020
  18. PIPERAZINE FERULAT [Concomitant]
     Dosage: 200 MG, UNK
     Dates: start: 20161014, end: 20161023
  19. ATORVASTATIN CALCIUM. [Concomitant]
     Active Substance: ATORVASTATIN CALCIUM
     Indication: CORONARY ARTERY STENOSIS
     Dosage: 1 UNK, UNK
     Dates: start: 2013
  20. DARBEPOETIN ALFA [Suspect]
     Active Substance: DARBEPOETIN ALFA
     Indication: ANAEMIA OF MALIGNANT DISEASE
     Dosage: UNK
     Route: 050
     Dates: start: 20160906
  21. TROPISETRON [Concomitant]
     Active Substance: TROPISETRON
     Indication: VOMITING
  22. PANTOPRAZOLE SODIUM. [Concomitant]
     Active Substance: PANTOPRAZOLE SODIUM
     Indication: NAUSEA
     Dosage: 20 MG, UNK
     Dates: start: 20160831, end: 20160929
  23. CODEINE COMPOUND [Concomitant]
     Indication: COUGH
     Dosage: 10 ML, UNK
     Dates: start: 20161014, end: 20161023
  24. METOPROLOL SUCCINATE. [Concomitant]
     Active Substance: METOPROLOL SUCCINATE
     Indication: CORONARY ARTERY STENOSIS
     Dosage: 1 UNK, UNK
     Dates: start: 2013
  25. PEMETREXED [Concomitant]
     Active Substance: PEMETREXED
     Dosage: 900 MG, UNK
     Dates: start: 20160803, end: 20160927
  26. PANTOPRAZOLE SODIUM. [Concomitant]
     Active Substance: PANTOPRAZOLE SODIUM
     Indication: VOMITING
  27. METOCLOPRAMIDE. [Concomitant]
     Active Substance: METOCLOPRAMIDE
     Indication: NAUSEA
     Dosage: 10 MG, UNK
     Dates: start: 20160927, end: 20160929
  28. METOCLOPRAMIDE. [Concomitant]
     Active Substance: METOCLOPRAMIDE
     Indication: VOMITING
  29. DEXAMETHASONE ACETATE [Concomitant]
     Active Substance: DEXAMETHASONE ACETATE
     Indication: IRRITABILITY
     Dosage: 4 MG, UNK
     Dates: start: 20160926, end: 20160928
  30. THYMALFASIN [Concomitant]
     Active Substance: THYMALFASIN
     Dosage: 1.6 MG, UNK
     Dates: start: 20161014, end: 20161018
  31. MONTELUKAST [Concomitant]
     Active Substance: MONTELUKAST SODIUM
     Dosage: 10 MG, UNK
     Dates: start: 20161015, end: 20161023
  32. INSULIN [Concomitant]
     Active Substance: INSULIN NOS
     Indication: DIABETES MELLITUS
     Dosage: 6 TO 8
     Dates: start: 20160831, end: 20160927
  33. AMBROXOL HYDROCHLORIDE [Concomitant]
     Active Substance: AMBROXOL HYDROCHLORIDE
     Indication: PRODUCTIVE COUGH
     Dosage: 30 MG, UNK
     Dates: start: 20161012, end: 20161020
  34. BUDESONIDE. [Concomitant]
     Active Substance: BUDESONIDE
     Dosage: 2 ML, UNK
     Dates: start: 20161012, end: 20161020

REACTIONS (1)
  - Hypoglycaemia [Recovered/Resolved]

NARRATIVE: CASE EVENT DATE: 20161025
